FAERS Safety Report 6117290-X (Version None)
Quarter: 2009Q1

REPORT INFORMATION
  Report Type: 
  Country: None (occurrence: None)
  Receive Date: 20090314
  Receipt Date: 20090112
  Transmission Date: 20090719
  Serious: No
  Sender: FDA-Public Use
  Company Number: US-ABBOTT-09P-163-0497424-00

PATIENT
  Weight: 86.714 kg

DRUGS (2)
  1. HUMIRA [Suspect]
     Indication: CROHN'S DISEASE
     Dates: start: 20081001, end: 20081201
  2. HUMIRA [Suspect]
     Dates: start: 20081201, end: 20090112

REACTIONS (4)
  - CHILLS [None]
  - CROHN'S DISEASE [None]
  - PAIN [None]
  - PYREXIA [None]
